FAERS Safety Report 24166897 (Version 1)
Quarter: 2024Q3

REPORT INFORMATION
  Report Type: Report from Study
  Country: CA (occurrence: CA)
  Receive Date: 20240802
  Receipt Date: 20240802
  Transmission Date: 20241016
  Serious: Yes (Other)
  Sender: NOVARTIS
  Company Number: CA-002147023-NVSC2021CA284259

PATIENT
  Age: 60 Year
  Sex: Female

DRUGS (6)
  1. COSENTYX [Suspect]
     Active Substance: SECUKINUMAB
     Indication: Psoriasis
     Dosage: 300 MG, QMO
     Route: 058
     Dates: start: 20211008
  2. COSENTYX [Suspect]
     Active Substance: SECUKINUMAB
     Dosage: 300 MG, QMO
     Route: 058
     Dates: start: 202404, end: 202404
  3. ENSTILAR [Concomitant]
     Active Substance: BETAMETHASONE DIPROPIONATE\CALCIPOTRIENE HYDRATE
     Indication: Product used for unknown indication
     Dosage: UNK, UNKNOWN (TOPICAL)
     Route: 065
     Dates: start: 2018
  4. BETAMETHASONE DIPROPIONATE\CALCIPOTRIENE MONOHYDRATE [Concomitant]
     Active Substance: BETAMETHASONE DIPROPIONATE\CALCIPOTRIENE MONOHYDRATE
     Indication: Product used for unknown indication
     Dosage: UNK, UNKNOWN (TOPICAL)
     Route: 065
     Dates: start: 2016
  5. FUCIDIN H [Concomitant]
     Indication: Product used for unknown indication
     Dosage: UNK, UNKNOWN (TOPICAL)
     Route: 065
     Dates: start: 2021
  6. LAMISIL [Concomitant]
     Active Substance: TERBINAFINE HYDROCHLORIDE
     Indication: Product used for unknown indication
     Dosage: UNK, UNKNOWN (TOPICAL)
     Route: 065
     Dates: start: 2017

REACTIONS (19)
  - Colitis ulcerative [Unknown]
  - Dry skin [Unknown]
  - Skin mass [Unknown]
  - Pruritus [Unknown]
  - Rash macular [Unknown]
  - Discharge [Unknown]
  - Malaise [Unknown]
  - Memory impairment [Unknown]
  - Gastrointestinal disorder [Unknown]
  - Hepatic steatosis [Not Recovered/Not Resolved]
  - Hepatic enzyme increased [Unknown]
  - Weight decreased [Unknown]
  - Muscle atrophy [Unknown]
  - Skin disorder [Unknown]
  - Fatigue [Unknown]
  - Asthenia [Unknown]
  - Liver disorder [Unknown]
  - Diarrhoea [Unknown]
  - Psoriasis [Unknown]

NARRATIVE: CASE EVENT DATE: 20240301
